FAERS Safety Report 7487663-1 (Version None)
Quarter: 2011Q2

REPORT INFORMATION
  Report Type: 
  Country: None (occurrence: None)
  Receive Date: 20110518
  Receipt Date: 20081105
  Transmission Date: 20111010
  Serious: Yes (Other)
  Sender: FDA-Public Use
  Company Number: US-BAYER-2011-009492

PATIENT
  Sex: Female
  Weight: 69 kg

DRUGS (16)
  1. TRASYLOL [Suspect]
     Indication: CORONARY ARTERY BYPASS
     Dosage: SOLUTION FOR INFUSION
     Route: 042
     Dates: start: 20060101
  2. MANNITOL [Concomitant]
     Dosage: 100 MG, UNK
     Route: 042
     Dates: start: 20060117
  3. RED BLOOD CELLS, CONCENTRATED [Concomitant]
     Dosage: 2 UNITS
  4. PHENYLEPHRINE [PHENYLEPHRINE] [Concomitant]
     Dosage: UNK
     Dates: start: 20060117
  5. ACETYLSALICYLIC ACID SRT [Concomitant]
     Dosage: 81 MG, QD
  6. ZANTAC [Concomitant]
     Dosage: 75 MG, UNK
  7. DOPAMINE HCL [Concomitant]
     Dosage: UNK
     Dates: start: 20060117
  8. METFORMIN HCL [Concomitant]
     Dosage: 500 MG, UNK
  9. AMICAR [Concomitant]
     Dosage: UNK
     Dates: start: 20060117
  10. HEPARIN [Concomitant]
     Dosage: 28,000 UNITS
     Route: 042
     Dates: start: 20060117
  11. GLYBURIDE [Concomitant]
  12. CEFTRIAXONE [Concomitant]
     Dosage: UNK
     Dates: start: 20060117
  13. PROTAMINE SULFATE [Concomitant]
     Dosage: UNK
     Dates: start: 20060117
  14. NITROGLYCERIN [Concomitant]
  15. DIOVAN [Concomitant]
     Dosage: 160 MG, QD
  16. VERSED [Concomitant]
     Dosage: UNK
     Dates: start: 20060117

REACTIONS (10)
  - RENAL IMPAIRMENT [None]
  - PAIN [None]
  - RENAL FAILURE [None]
  - RENAL INJURY [None]
  - EMOTIONAL DISTRESS [None]
  - ANXIETY [None]
  - STRESS [None]
  - UNEVALUABLE EVENT [None]
  - FEAR [None]
  - FEAR OF DEATH [None]
